FAERS Safety Report 18633683 (Version 1)
Quarter: 2020Q4

REPORT INFORMATION
  Report Type: Spontaneous
  Country: US (occurrence: US)
  Receive Date: 20201218
  Receipt Date: 20201218
  Transmission Date: 20210114
  Serious: Yes (Hospitalization)
  Sender: FDA-Public Use
  Company Number: None

PATIENT
  Age: 58 Year
  Sex: Female

DRUGS (13)
  1. ARAVA [Concomitant]
     Active Substance: LEFLUNOMIDE
  2. DIAZEPAM. [Concomitant]
     Active Substance: DIAZEPAM
  3. NORVASC [Concomitant]
     Active Substance: AMLODIPINE BESYLATE
  4. ENOXAPARIN [Concomitant]
     Active Substance: ENOXAPARIN
  5. HYDROXYCHLOROQUINE [Concomitant]
     Active Substance: HYDROXYCHLOROQUINE
  6. GABAPENTIN. [Concomitant]
     Active Substance: GABAPENTIN
  7. DIOVAN [Concomitant]
     Active Substance: VALSARTAN
  8. LISINOPRIL. [Concomitant]
     Active Substance: LISINOPRIL
  9. XELJANZ XR [Suspect]
     Active Substance: TOFACITINIB CITRATE
     Indication: RHEUMATOID ARTHRITIS
     Route: 048
  10. AVALIDE [Concomitant]
     Active Substance: HYDROCHLOROTHIAZIDE\IRBESARTAN
  11. PROAIR HFA [Concomitant]
     Active Substance: ALBUTEROL SULFATE
  12. CYMBALTA [Concomitant]
     Active Substance: DULOXETINE HYDROCHLORIDE
  13. PREDNISONE. [Concomitant]
     Active Substance: PREDNISONE

REACTIONS (1)
  - Adrenocortical insufficiency acute [None]
